FAERS Safety Report 9229457 (Version 1)
Quarter: 2013Q2

REPORT INFORMATION
  Report Type: Spontaneous
  Country: US (occurrence: US)
  Receive Date: 20130412
  Receipt Date: 20130412
  Transmission Date: 20140414
  Serious: Yes (Hospitalization)
  Sender: FDA-Public Use
  Company Number: US-ASTELLAS-2013US002695

PATIENT
  Age: 57 Year
  Sex: Male
  Weight: 80 kg

DRUGS (1)
  1. PROGRAF [Suspect]
     Indication: LIVER TRANSPLANT
     Dosage: 1 MG, UID/QD
     Route: 048
     Dates: start: 19980417

REACTIONS (3)
  - Abdominal hernia [Unknown]
  - Staphylococcal infection [Unknown]
  - Infection [Unknown]
